FAERS Safety Report 21464322 (Version 1)
Quarter: 2022Q4

REPORT INFORMATION
  Report Type: Spontaneous
  Country: DK (occurrence: DK)
  Receive Date: 20221017
  Receipt Date: 20221017
  Transmission Date: 20230113
  Serious: Yes (Hospitalization, Other)
  Sender: FDA-Public Use
  Company Number: DK-SUN PHARMACEUTICAL INDUSTRIES LTD-2022R1-359252

PATIENT
  Age: 24 Year
  Sex: Female

DRUGS (3)
  1. MOMETASONE [Suspect]
     Active Substance: MOMETASONE
     Indication: Asthma
     Dosage: 3-7 TIMES, WEEKLY
     Route: 061
  2. BUDESONIDE [Suspect]
     Active Substance: BUDESONIDE
     Indication: Sinusitis
     Dosage: 1400 MICROGRAM, DAILY
  3. FLUTICASONE [Suspect]
     Active Substance: FLUTICASONE
     Indication: Atopy
     Dosage: 55 MICROGRAM, DAILY
     Route: 045

REACTIONS (1)
  - Adrenal insufficiency [Recovered/Resolved]
